FAERS Safety Report 12722270 (Version 2)
Quarter: 2016Q3

REPORT INFORMATION
  Report Type: Spontaneous
  Country: US (occurrence: US)
  Receive Date: 20160907
  Receipt Date: 20160915
  Transmission Date: 20161109
  Serious: Yes (Other)
  Sender: FDA-Public Use
  Company Number: US-ENDO PHARMACEUTICALS INC.-2016-005474

PATIENT
  Age: 56 Year
  Sex: Female
  Weight: 79.9 kg

DRUGS (1)
  1. PHENOBARBITAL. [Suspect]
     Active Substance: PHENOBARBITAL
     Indication: SEIZURE
     Route: 048
     Dates: start: 1989

REACTIONS (3)
  - Drug ineffective [Not Recovered/Not Resolved]
  - Generalised tonic-clonic seizure [Unknown]
  - Seizure [Not Recovered/Not Resolved]

NARRATIVE: CASE EVENT DATE: 2014
